FAERS Safety Report 4437811-2 (Version None)
Quarter: 2004Q3

REPORT INFORMATION
  Report Type: 
  Country: None (occurrence: None)
  Receive Date: 20040728
  Receipt Date: 20040324
  Transmission Date: 20050211
  Serious: No
  Sender: FDA-Public Use
  Company Number: USA040361261

PATIENT
  Age: 5 Year
  Sex: Male
  Weight: 20 kg

DRUGS (1)
  1. STRATTERA [Suspect]
     Indication: PSYCHOMOTOR HYPERACTIVITY
     Dosage: 25 MG/1 DAY
     Dates: start: 20040301

REACTIONS (3)
  - ABDOMINAL PAIN UPPER [None]
  - DECREASED APPETITE [None]
  - EATING DISORDER SYMPTOM [None]
